FAERS Safety Report 4603429-1 (Version None)
Quarter: 2005Q1

REPORT INFORMATION
  Report Type: 
  Country: None (occurrence: None)
  Receive Date: 20050309
  Receipt Date: 20050302
  Transmission Date: 20050727
  Serious: Yes (Hospitalization)
  Sender: FDA-Public Use
  Company Number: DE-MERCK-0503DEU00052

PATIENT
  Sex: Female

DRUGS (2)
  1. VIOXX [Suspect]
     Indication: OSTEOARTHRITIS
     Route: 048
     Dates: start: 20010901, end: 20041001
  2. VIOXX [Suspect]
     Indication: OSTEOCHONDROSIS
     Route: 048
     Dates: start: 20010901, end: 20041001

REACTIONS (1)
  - CEREBROVASCULAR ACCIDENT [None]
